FAERS Safety Report 6384330-2 (Version None)
Quarter: 2009Q3

REPORT INFORMATION
  Report Type: 
  Country: None (occurrence: None)
  Receive Date: 20090929
  Receipt Date: 20090928
  Transmission Date: 20100115
  Serious: Yes (Death)
  Sender: FDA-Public Use
  Company Number: GXKR2009DE10378

PATIENT
  Age: 42 Year
  Sex: Male

DRUGS (3)
  1. DOXEPIN HCL [Suspect]
     Dosage: ORAL
     Route: 048
  2. METHADONE HCL [Suspect]
  3. DIAZEPAM [Suspect]

REACTIONS (2)
  - CIRCULATORY COLLAPSE [None]
  - PNEUMONIA [None]
